FAERS Safety Report 12779983 (Version 1)
Quarter: 2016Q3

REPORT INFORMATION
  Report Type: Spontaneous
  Country: US (occurrence: US)
  Receive Date: 20160926
  Receipt Date: 20160926
  Transmission Date: 20161109
  Serious: Yes (Life-Threatening, Other)
  Sender: FDA-Public Use
  Company Number: None

PATIENT
  Age: 61 Year
  Sex: Male

DRUGS (1)
  1. LANTUS [Suspect]
     Active Substance: INSULIN GLARGINE
     Indication: TYPE 2 DIABETES MELLITUS
     Route: 058

REACTIONS (6)
  - Angiolymphoid hyperplasia with eosinophilia [None]
  - Rash [None]
  - Neoplasm malignant [None]
  - Castleman^s disease [None]
  - Plasma cell myeloma [None]
  - Sarcoidosis [None]

NARRATIVE: CASE EVENT DATE: 20160922
